FAERS Safety Report 6433126-1 (Version None)
Quarter: 2009Q4

REPORT INFORMATION
  Report Type: 
  Country: None (occurrence: None)
  Receive Date: 20091109
  Receipt Date: 20091103
  Transmission Date: 20100525
  Serious: Yes (Other)
  Sender: FDA-Public Use
  Company Number: CA-ABBOTT-09P-028-0560784-00

PATIENT
  Sex: Male

DRUGS (1)
  1. LUPRON DEPOT [Suspect]
     Indication: PROSTATE CANCER
     Dates: start: 20060922

REACTIONS (5)
  - ASTHENIA [None]
  - BLADDER CANCER [None]
  - BLADDER PAIN [None]
  - FATIGUE [None]
  - RECTAL CANCER [None]
